FAERS Safety Report 6440562-6 (Version None)
Quarter: 2009Q4

REPORT INFORMATION
  Report Type: 
  Country: None (occurrence: None)
  Receive Date: 20091113
  Receipt Date: 20091105
  Transmission Date: 20100525
  Serious: Yes (Death)
  Sender: FDA-Public Use
  Company Number: AU-WATSON-2009-09456

PATIENT
  Age: 37 Year
  Sex: Female

DRUGS (1)
  1. COLCHICINE (WATSON LABORATORIES) [Suspect]
     Indication: INTENTIONAL OVERDOSE
     Dosage: 15 MG, SINGLE
     Route: 048

REACTIONS (9)
  - ANAEMIA [None]
  - CIRCULATORY COLLAPSE [None]
  - DIARRHOEA [None]
  - HYPERPHOSPHATAEMIA [None]
  - LIVER FUNCTION TEST ABNORMAL [None]
  - NEUROLOGICAL EXAMINATION ABNORMAL [None]
  - NEUTROPENIA [None]
  - RENAL IMPAIRMENT [None]
  - THROMBOCYTOPENIA [None]
